FAERS Safety Report 23516279 (Version 4)
Quarter: 2024Q3

REPORT INFORMATION
  Report Type: Spontaneous
  Country: US (occurrence: US)
  Receive Date: 20240213
  Receipt Date: 20240716
  Transmission Date: 20241017
  Serious: Yes (Other)
  Sender: BRISTOL MYERS SQUIBB
  Company Number: US-BRISTOL-MYERS SQUIBB COMPANY-2024-020293

PATIENT
  Age: 73 Year
  Sex: Male

DRUGS (2)
  1. LENALIDOMIDE [Suspect]
     Active Substance: LENALIDOMIDE
     Indication: Plasma cell myeloma
     Dosage: TAKE 1 CAPSULE (20MG) BY MOUTH DAILY FOR 1 WEEK ON AND 1 WEEK OFF
     Route: 048
  2. LENALIDOMIDE [Suspect]
     Active Substance: LENALIDOMIDE
     Dosage: TAKE 1 CAPSULE (10MG TOTAL) BY MOUTH EVERY DAY ON DAYS 1-21 OF EACH 28 DAY CYCLE
     Route: 048

REACTIONS (4)
  - Rash pruritic [Recovering/Resolving]
  - Off label use [Unknown]
  - Dry skin [Recovering/Resolving]
  - Oedema peripheral [Not Recovered/Not Resolved]
